FAERS Safety Report 20879378 (Version 2)
Quarter: 2022Q2

REPORT INFORMATION
  Report Type: Spontaneous
  Country: MX (occurrence: MX)
  Receive Date: 20220526
  Receipt Date: 20220613
  Transmission Date: 20220721
  Serious: Yes (Other)
  Sender: FDA-Public Use
  Company Number: MX-JUBILANT CADISTA PHARMACEUTICALS-2022JUB00150

PATIENT
  Sex: Male
  Weight: 1.6 kg

DRUGS (1)
  1. CARBAMAZEPINE [Suspect]
     Active Substance: CARBAMAZEPINE
     Indication: Frontal lobe epilepsy
     Dosage: 200 MG, 2X/DAY
     Route: 015

REACTIONS (2)
  - Foetal distress syndrome [Recovered/Resolved]
  - Haemodynamic instability [Recovered/Resolved]
